FAERS Safety Report 7747640-X (Version None)
Quarter: 2011Q3

REPORT INFORMATION
  Report Type: 
  Country: None (occurrence: None)
  Receive Date: 20110913
  Receipt Date: 20110908
  Transmission Date: 20111222
  Serious: Yes (Other)
  Sender: FDA-Public Use
  Company Number: GB-PFIZER INC-2011211871

PATIENT
  Age: 74 Year
  Sex: Female
  Weight: 70 kg

DRUGS (16)
  1. FLUOROURACIL [Concomitant]
     Dosage: UNK
     Dates: start: 20110621, end: 20110802
  2. LEVOTHYROXINE [Concomitant]
     Dosage: UNK
     Dates: start: 20110601, end: 20110630
  3. SIMVASTATIN [Concomitant]
     Dosage: UNK
     Dates: start: 20110728, end: 20110825
  4. AMITRIPTYLINE HYDROCHLORIDE [Concomitant]
     Dosage: UNK
     Dates: start: 20110601, end: 20110630
  5. ISPAGHULA HUSK [Concomitant]
     Dosage: UNK
     Dates: start: 20110601, end: 20110630
  6. RISEDRONATE SODIUM [Concomitant]
     Dosage: UNK
     Dates: start: 20110601, end: 20110630
  7. RAMIPRIL [Suspect]
     Dosage: UNK
  8. ALCLOMETASONE DIPROPIONATE [Concomitant]
     Dosage: UNK
     Dates: start: 20110621, end: 20110802
  9. CETIRIZINE [Concomitant]
     Dosage: UNK
     Dates: start: 20110513, end: 20110610
  10. HYDROXOCOBALAMIN [Concomitant]
     Dosage: UNK
     Dates: start: 20110620, end: 20110621
  11. PARACETAMOL [Concomitant]
     Dosage: UNK
     Dates: start: 20110728, end: 20110825
  12. TRAMADOL [Concomitant]
     Dosage: UNK
     Dates: start: 20110601, end: 20110630
  13. ACETYLSALICYLIC ACID [Concomitant]
     Dosage: UNK
     Dates: start: 20110601, end: 20110630
  14. LEVOTHYROXINE [Concomitant]
     Dosage: UNK
     Dates: start: 20110728, end: 20110825
  15. SIMVASTATIN [Concomitant]
     Dosage: UNK
     Dates: start: 20110601, end: 20110630
  16. DILTIAZEM HCL [Concomitant]
     Dosage: UNK
     Dates: start: 20110513, end: 20110623

REACTIONS (1)
  - RESTLESSNESS [None]
